FAERS Safety Report 4366772-X (Version None)
Quarter: 2004Q2

REPORT INFORMATION
  Report Type: 
  Country: None (occurrence: None)
  Receive Date: 20040525
  Receipt Date: 20040525
  Transmission Date: 20050107
  Serious: Yes (Hospitalization)
  Sender: FDA-Public Use
  Company Number: None

PATIENT
  Age: 74 Year
  Sex: Male
  Weight: 69.8539 kg

DRUGS (3)
  1. CRESTOR [Suspect]
     Indication: HYPERLIPIDAEMIA
     Dosage: ABOUT A WEEK
  2. VIOXX [Concomitant]
  3. AMLODOIPINE (NORVASC) [Concomitant]

REACTIONS (4)
  - ABDOMINAL PAIN [None]
  - MUSCLE CRAMP [None]
  - RENAL FAILURE [None]
  - RHABDOMYOLYSIS [None]
